FAERS Safety Report 20240083 (Version 1)
Quarter: 2021Q4

REPORT INFORMATION
  Report Type: Spontaneous
  Country: IN (occurrence: IN)
  Receive Date: 20211228
  Receipt Date: 20211228
  Transmission Date: 20220303
  Serious: Yes (Other)
  Sender: FDA-Public Use
  Company Number: IN-PFIZER INC-202101797986

PATIENT
  Age: 64 Year
  Sex: Male
  Weight: 67.8 kg

DRUGS (7)
  1. IRINOTECAN [Suspect]
     Active Substance: IRINOTECAN
     Indication: Colon cancer
     Dosage: 300 MG, EVERY 2 WEEKS
     Route: 042
     Dates: start: 20211130
  2. FLUOROURACIL [Concomitant]
     Active Substance: FLUOROURACIL
     Dosage: 4200 MG
  3. APREPITANT [Concomitant]
     Active Substance: APREPITANT
     Dosage: 125 MG
     Route: 048
  4. ATROPINE [Concomitant]
     Active Substance: ATROPINE
     Dosage: 0.3 MG
     Route: 058
  5. LEUCOVORIN [Concomitant]
     Active Substance: LEUCOVORIN
     Dosage: 700 MG
  6. ONDANSETRON [Concomitant]
     Active Substance: ONDANSETRON
     Dosage: 8 MG
     Route: 042
  7. PANTOPRAZOLE SODIUM [Concomitant]
     Active Substance: PANTOPRAZOLE SODIUM
     Dosage: 40 MG
     Route: 040

REACTIONS (5)
  - Haemorrhage [Unknown]
  - Nausea [Unknown]
  - Vomiting [Unknown]
  - Constipation [Unknown]
  - Spinal pain [Unknown]
